FAERS Safety Report 13255177 (Version 1)
Quarter: 2017Q1

REPORT INFORMATION
  Report Type: Spontaneous
  Country: US (occurrence: US)
  Receive Date: 20170217
  Receipt Date: 20170217
  Transmission Date: 20170428
  Serious: Yes (Disabling)
  Sender: FDA-Public Use
  Company Number: None

PATIENT
  Age: 25 Year
  Sex: Female
  Weight: 86.26 kg

DRUGS (4)
  1. PARAGARD T 380A [Suspect]
     Active Substance: COPPER
  2. MAGNESIUM [Concomitant]
     Active Substance: MAGNESIUM
  3. VITAMIN C [Concomitant]
     Active Substance: ASCORBIC ACID
  4. ZINC. [Concomitant]
     Active Substance: ZINC

REACTIONS (9)
  - Anxiety [None]
  - Insomnia [None]
  - Unevaluable event [None]
  - Device toxicity [None]
  - Tachyphrenia [None]
  - Joint stiffness [None]
  - Hypertension [None]
  - Headache [None]
  - Attention deficit/hyperactivity disorder [None]

NARRATIVE: CASE EVENT DATE: 20141022
